FAERS Safety Report 4831409-X (Version None)
Quarter: 2005Q4

REPORT INFORMATION
  Report Type: 
  Country: None (occurrence: None)
  Receive Date: 20051118
  Receipt Date: 20051117
  Transmission Date: 20060501
  Serious: Yes (Other)
  Sender: FDA-Public Use
  Company Number: NL-GLAXOSMITHKLINE-B0400804A

PATIENT
  Age: 70 Year
  Sex: Female

DRUGS (3)
  1. ROSIGLITAZONE MALEATE [Suspect]
     Indication: DRUG USE FOR UNKNOWN INDICATION
     Dosage: 4MG PER DAY
     Dates: start: 20050913, end: 20051004
  2. ENALAPRIL MALEATE AND HYDROCHLOROTHIAZIDE [Concomitant]
     Dates: start: 20050127
  3. OXAZEPAM [Concomitant]
     Dosage: 10MG PER DAY
     Dates: start: 19940907

REACTIONS (4)
  - BODY TEMPERATURE DECREASED [None]
  - FEELING COLD [None]
  - ILL-DEFINED DISORDER [None]
  - MALAISE [None]
